FAERS Safety Report 5747937-9 (Version None)
Quarter: 2008Q2

REPORT INFORMATION
  Report Type: 
  Country: None (occurrence: None)
  Receive Date: 20080523
  Receipt Date: 20080513
  Transmission Date: 20081010
  Serious: Yes (Other)
  Sender: FDA-Public Use
  Company Number: JP-JNJFOC-20080501746

PATIENT
  Age: 68 Year
  Sex: Female

DRUGS (11)
  1. LEVOFLOXACIN [Suspect]
     Indication: LYMPH NODE TUBERCULOSIS
     Route: 048
  2. ISCOTIN [Suspect]
     Indication: LYMPH NODE TUBERCULOSIS
     Route: 048
  3. ESANBUTOL [Concomitant]
     Indication: LYMPH NODE TUBERCULOSIS
     Route: 048
  4. PYRAMIDE [Concomitant]
     Indication: LYMPH NODE TUBERCULOSIS
     Route: 048
  5. OLMETEC [Concomitant]
     Route: 048
  6. AMLODIN [Concomitant]
     Route: 048
  7. CELTECT [Concomitant]
     Route: 048
  8. PROTECADIN [Concomitant]
     Route: 048
  9. ASPIRIN [Concomitant]
     Route: 048
  10. FOLIAMIN [Concomitant]
     Route: 048
  11. PYDOXAL [Concomitant]
     Route: 048

REACTIONS (2)
  - NEUROPATHY PERIPHERAL [None]
  - QUADRIPLEGIA [None]
